FAERS Safety Report 6579819-7 (Version None)
Quarter: 2010Q1

REPORT INFORMATION
  Report Type: 
  Country: None (occurrence: None)
  Receive Date: 20100212
  Receipt Date: 20100203
  Transmission Date: 20100710
  Serious: Yes (Other)
  Sender: FDA-Public Use
  Company Number: JP-ROCHE-684664

PATIENT
  Sex: Female

DRUGS (1)
  1. ACTEMRA [Suspect]
     Route: 041
     Dates: start: 20100106

REACTIONS (3)
  - CEREBRAL INFARCTION [None]
  - HEADACHE [None]
  - VENTRICULAR ARRHYTHMIA [None]
